FAERS Safety Report 21830708 (Version 1)
Quarter: 2023Q1

REPORT INFORMATION
  Report Type: Spontaneous
  Country: US (occurrence: None)
  Receive Date: 20230106
  Receipt Date: 20230106
  Transmission Date: 20230418
  Serious: Yes (Hospitalization)
  Sender: FDA-Public Use
  Company Number: None

PATIENT
  Sex: Male

DRUGS (2)
  1. DEVICE [Suspect]
     Active Substance: DEVICE
     Dosage: OTHER STRENGTH : 0.2 GM/ML;?FREQUENCY : WEEKLY;?
     Route: 058
     Dates: start: 20220715
  2. HIZENTRA [Suspect]
     Active Substance: HUMAN IMMUNOGLOBULIN G
     Route: 058
     Dates: start: 20220715

REACTIONS (4)
  - Pseudomonas infection [None]
  - Transient ischaemic attack [None]
  - Cerebrovascular accident [None]
  - Device malfunction [None]
